FAERS Safety Report 22075360 (Version 1)
Quarter: 2023Q1

REPORT INFORMATION
  Report Type: Spontaneous
  Country: US (occurrence: US)
  Receive Date: 20230308
  Receipt Date: 20230308
  Transmission Date: 20230417
  Serious: Yes (Other)
  Sender: FDA-Public Use
  Company Number: US-TEVA-2023-US-2862192

PATIENT
  Age: 83 Year
  Sex: Female

DRUGS (3)
  1. ATENOLOL [Suspect]
     Active Substance: ATENOLOL
     Indication: Hypertension
     Dosage: 50 MILLIGRAM DAILY; HALF TABLET IN THE MORNING AND A HALF TABLET AT NIGHT
  2. ATENOLOL [Suspect]
     Active Substance: ATENOLOL
     Dosage: 25 MG
  3. PROTONIX [Concomitant]
     Active Substance: PANTOPRAZOLE SODIUM
     Indication: Oesophageal disorder

REACTIONS (3)
  - Autoimmune disorder [Unknown]
  - Polymyalgia rheumatica [Unknown]
  - Blood pressure increased [Unknown]
